FAERS Safety Report 13859036 (Version 1)
Quarter: 2017Q3

REPORT INFORMATION
  Report Type: Report from Study
  Country: None (occurrence: IT)
  Receive Date: 20170811
  Receipt Date: 20170811
  Transmission Date: 20171127
  Serious: Yes (Death)
  Sender: FDA-Public Use
  Company Number: IT-ABBVIE-17K-083-2067872-00

PATIENT
  Age: 87 Year
  Sex: Female
  Weight: 70 kg

DRUGS (1)
  1. DUODOPA [Suspect]
     Active Substance: CARBIDOPA\LEVODOPA
     Indication: PARKINSON^S DISEASE
     Dosage: MD 7.5+3?CR 3.2?ED 1.5
     Route: 050
     Dates: start: 20150804

REACTIONS (2)
  - Parkinson^s disease [Fatal]
  - General physical health deterioration [Fatal]

NARRATIVE: CASE EVENT DATE: 201708
